FAERS Safety Report 16509735 (Version 5)
Quarter: 2020Q4

REPORT INFORMATION
  Report Type: Spontaneous
  Country: US (occurrence: US)
  Receive Date: 20190702
  Receipt Date: 20201001
  Transmission Date: 20210113
  Serious: Yes (Hospitalization, Other)
  Sender: FDA-Public Use
  Company Number: US-TEVA-2019-US-1066498

PATIENT
  Age: 76 Year
  Sex: Female
  Weight: 60.84 kg

DRUGS (28)
  1. FIRDAPSE [Suspect]
     Active Substance: AMIFAMPRIDINE PHOSPHATE
     Dosage: 15 MILLIGRAM DAILY;
     Route: 048
     Dates: start: 2019
  2. FIORICET [Concomitant]
     Active Substance: ACETAMINOPHEN\BUTALBITAL\CAFFEINE
     Indication: MIGRAINE
     Dosage: 50-300-40 AS NEEDED
     Route: 065
  3. OMEPRAZOLE. [Concomitant]
     Active Substance: OMEPRAZOLE
     Route: 065
  4. FIRDAPSE [Suspect]
     Active Substance: AMIFAMPRIDINE PHOSPHATE
     Indication: MYASTHENIC SYNDROME
     Dosage: 20 MILLIGRAM DAILY;
     Route: 048
     Dates: start: 2019, end: 2019
  5. FIRDAPSE [Suspect]
     Active Substance: AMIFAMPRIDINE PHOSPHATE
     Dosage: 40 MILLIGRAM DAILY;
     Route: 048
     Dates: start: 2019, end: 2019
  6. LORATADINE. [Concomitant]
     Active Substance: LORATADINE
     Dosage: 10 MG
     Route: 065
  7. GABAPENTIN. [Concomitant]
     Active Substance: GABAPENTIN
     Route: 065
  8. FIRDAPSE [Suspect]
     Active Substance: AMIFAMPRIDINE PHOSPHATE
     Dosage: 30 MILLIGRAM DAILY;
     Route: 048
  9. ARMOUR THYROID [Suspect]
     Active Substance: THYROID, PORCINE
     Dosage: 120 MILLIGRAM DAILY;
     Route: 065
     Dates: start: 20200318
  10. XANAX [Concomitant]
     Active Substance: ALPRAZOLAM
     Route: 065
  11. FIRDAPSE [Suspect]
     Active Substance: AMIFAMPRIDINE PHOSPHATE
     Dosage: 10 MILLIGRAM DAILY;
     Route: 048
     Dates: start: 2019
  12. ARMOUR THYROID [Suspect]
     Active Substance: THYROID, PORCINE
     Route: 065
  13. MELATONIN [Concomitant]
     Active Substance: MELATONIN
     Dosage: BEFORE BEDTIME
     Route: 065
  14. FIRDAPSE [Suspect]
     Active Substance: AMIFAMPRIDINE PHOSPHATE
     Dosage: 10 MILLIGRAM DAILY;
     Route: 048
     Dates: start: 2019
  15. FIRDAPSE [Suspect]
     Active Substance: AMIFAMPRIDINE PHOSPHATE
     Dosage: 15 MILLIGRAM DAILY;
     Route: 048
     Dates: start: 2019, end: 2019
  16. FIRDAPSE [Suspect]
     Active Substance: AMIFAMPRIDINE PHOSPHATE
     Dosage: 15 MILLIGRAM DAILY;
     Route: 048
     Dates: start: 2019
  17. FIRDAPSE [Suspect]
     Active Substance: AMIFAMPRIDINE PHOSPHATE
     Route: 048
     Dates: start: 2019
  18. MIRAPEX [Concomitant]
     Active Substance: PRAMIPEXOLE DIHYDROCHLORIDE
     Indication: RESTLESS LEGS SYNDROME
     Route: 065
  19. VESICARE [Concomitant]
     Active Substance: SOLIFENACIN SUCCINATE
     Route: 065
  20. PREDNISONE. [Suspect]
     Active Substance: PREDNISONE
     Indication: CROHN^S DISEASE
     Dosage: 10 MILLIGRAM DAILY;
     Route: 065
  21. FIRDAPSE [Suspect]
     Active Substance: AMIFAMPRIDINE PHOSPHATE
     Dosage: DOSE: 15 MG IN THE MORNING AND 10 MG IN THE EVENING
     Route: 048
  22. LEVOTHYROXINE. [Concomitant]
     Active Substance: LEVOTHYROXINE
     Dosage: 150 MICROGRAM DAILY;
     Route: 065
  23. FOLIZANE [Concomitant]
     Route: 065
  24. FIRDAPSE [Suspect]
     Active Substance: AMIFAMPRIDINE PHOSPHATE
     Dosage: 50 MILLIGRAM DAILY;
     Route: 048
     Dates: start: 2019, end: 2019
  25. FLEXERIL [Suspect]
     Active Substance: CYCLOBENZAPRINE HYDROCHLORIDE
     Indication: MUSCLE RELAXANT THERAPY
     Route: 065
  26. FLEXERIL [Suspect]
     Active Substance: CYCLOBENZAPRINE HYDROCHLORIDE
     Indication: NECK PAIN
  27. LOSARTAN. [Concomitant]
     Active Substance: LOSARTAN
     Indication: HYPERTENSION
     Dosage: 100 MILLIGRAM DAILY;
     Route: 065
  28. PAXIL [Concomitant]
     Active Substance: PAROXETINE HYDROCHLORIDE
     Dosage: 40 MILLIGRAM DAILY;
     Route: 065

REACTIONS (40)
  - Torticollis [Not Recovered/Not Resolved]
  - Cellulitis [Unknown]
  - Muscle twitching [Unknown]
  - Musculoskeletal pain [Unknown]
  - Feeling abnormal [Unknown]
  - Vision blurred [Unknown]
  - Diplopia [Unknown]
  - Visual impairment [Unknown]
  - Fall [Unknown]
  - Back pain [Not Recovered/Not Resolved]
  - Motor dysfunction [Unknown]
  - Arthralgia [Unknown]
  - Limb discomfort [Unknown]
  - Malaise [Unknown]
  - Fatigue [Unknown]
  - Hypersomnia [Unknown]
  - Gastric ulcer [Unknown]
  - Chest pain [Unknown]
  - Osteoarthritis [Unknown]
  - Wound haemorrhage [Unknown]
  - Wound [Unknown]
  - Feeling cold [Unknown]
  - Neck pain [Not Recovered/Not Resolved]
  - Gastric ulcer haemorrhage [Unknown]
  - Eye movement disorder [Unknown]
  - Intentional product use issue [Unknown]
  - Hypothyroidism [Unknown]
  - Unevaluable event [Unknown]
  - Ulcer haemorrhage [Unknown]
  - Haemoglobin decreased [Unknown]
  - Condition aggravated [Not Recovered/Not Resolved]
  - Discomfort [Unknown]
  - Dysphonia [Unknown]
  - Insomnia [Unknown]
  - Therapeutic product effect incomplete [Unknown]
  - Dyspnoea [Not Recovered/Not Resolved]
  - Haematochezia [Unknown]
  - Wound infection [Unknown]
  - Drug ineffective [Unknown]
  - Migraine [Unknown]

NARRATIVE: CASE EVENT DATE: 201903
